FAERS Safety Report 13053235 (Version 1)
Quarter: 2016Q4

REPORT INFORMATION
  Report Type: Report from Study
  Country: CO (occurrence: CO)
  Receive Date: 20161222
  Receipt Date: 20161222
  Transmission Date: 20170207
  Serious: Yes (Other)
  Sender: FDA-Public Use
  Company Number: CO-ROCHE-1870508

PATIENT
  Sex: Female

DRUGS (1)
  1. TRASTUZUMAB [Suspect]
     Active Substance: TRASTUZUMAB
     Indication: BREAST CANCER
     Route: 042
     Dates: start: 20140916

REACTIONS (11)
  - Muscular weakness [Unknown]
  - Neuritis [Unknown]
  - Myalgia [Unknown]
  - Insomnia [Unknown]
  - Anaphylactic reaction [Unknown]
  - Arthralgia [Unknown]
  - Decreased appetite [Unknown]
  - Neuropathy peripheral [Unknown]
  - Vision blurred [Unknown]
  - Intermittent claudication [Unknown]
  - Abdominal pain [Unknown]
